FAERS Safety Report 14703531 (Version 3)
Quarter: 2018Q2

REPORT INFORMATION
  Report Type: Report from Study
  Country: TH (occurrence: TH)
  Receive Date: 20180402
  Receipt Date: 20180424
  Transmission Date: 20180711
  Serious: Yes (Death, Life-Threatening, Hospitalization)
  Sender: FDA-Public Use
  Company Number: TH-TAKEDA-2018MPI003358

PATIENT
  Age: 76 Year
  Sex: Female

DRUGS (1)
  1. VELCADE [Suspect]
     Active Substance: BORTEZOMIB
     Indication: PLASMA CELL MYELOMA
     Dosage: 1.75 MG, QD
     Route: 065
     Dates: start: 20171020

REACTIONS (2)
  - Blood disorder [Fatal]
  - Dengue fever [Unknown]

NARRATIVE: CASE EVENT DATE: 2018
